FAERS Safety Report 4504912-X (Version None)
Quarter: 2004Q4

REPORT INFORMATION
  Report Type: 
  Country: None (occurrence: None)
  Receive Date: 20040928
  Receipt Date: 20040803
  Transmission Date: 20050328
  Serious: No
  Sender: FDA-Public Use
  Company Number: 04P-163-0269002-00

PATIENT
  Age: 61 Year
  Sex: Female
  Weight: 68.9467 kg

DRUGS (9)
  1. HUMIRA [Suspect]
     Indication: RHEUMATOID ARTHRITIS
     Dosage: 40 MG, 1 IN 2 WK, SUBCUTANEOUS
     Route: 058
     Dates: start: 20040201
  2. METHOTREXATE SODIUM [Concomitant]
  3. NAPROXEN SODIUM [Concomitant]
  4. PROPANADIOL [Concomitant]
  5. CONJUGATED ESTROGEN [Concomitant]
  6. ACIDPHEX [Concomitant]
  7. FOLIC ACID [Concomitant]
  8. LEUKOVORAN [Concomitant]
  9. CLORAZEPATE DIPOTASSIUM [Concomitant]

REACTIONS (7)
  - HAEMATEMESIS [None]
  - INJECTION SITE ERYTHEMA [None]
  - INJECTION SITE SWELLING [None]
  - INJECTION SITE WARMTH [None]
  - PHARYNGOLARYNGEAL PAIN [None]
  - STOMATITIS [None]
  - TONGUE COATED [None]
